FAERS Safety Report 7769044-6 (Version None)
Quarter: 2011Q3

REPORT INFORMATION
  Report Type: 
  Country: None (occurrence: None)
  Receive Date: 20110922
  Receipt Date: 20110315
  Transmission Date: 20111222
  Serious: No
  Sender: FDA-Public Use
  Company Number: US-ASTRAZENECA-2010SE59626

PATIENT
  Age: 49 Year
  Sex: Female

DRUGS (2)
  1. SEROQUEL [Suspect]
     Route: 048
  2. SEROQUEL [Suspect]
     Route: 048

REACTIONS (6)
  - AGITATION [None]
  - FIBROMYALGIA [None]
  - DRUG INEFFECTIVE [None]
  - FEELING ABNORMAL [None]
  - INSOMNIA [None]
  - DRUG DOSE OMISSION [None]
